FAERS Safety Report 6358805-6 (Version None)
Quarter: 2009Q3

REPORT INFORMATION
  Report Type: 
  Country: None (occurrence: None)
  Receive Date: 20090916
  Receipt Date: 20090718
  Transmission Date: 20100115
  Serious: No
  Sender: FDA-Public Use
  Company Number: US-ABBOTT-09P-163-0586737-00

PATIENT
  Sex: Male
  Weight: 70.37 kg

DRUGS (3)
  1. TRILIPIX [Suspect]
     Indication: BLOOD CHOLESTEROL INCREASED
     Route: 048
     Dates: start: 20090627, end: 20090717
  2. GLUCOPHAGE [Concomitant]
     Indication: DIABETES MELLITUS
     Route: 048
  3. LOTREL [Concomitant]
     Indication: HYPERTENSION
     Dosage: 10MG-20MG DAILY
     Route: 048

REACTIONS (1)
  - MUSCULAR WEAKNESS [None]
